FAERS Safety Report 5269545-9 (Version None)
Quarter: 2007Q1

REPORT INFORMATION
  Report Type: 
  Country: None (occurrence: None)
  Receive Date: 20070320
  Receipt Date: 20070312
  Transmission Date: 20070707
  Serious: Yes (Hospitalization)
  Sender: FDA-Public Use
  Company Number: PHRM2007FR01041

PATIENT
  Age: 39 Year
  Sex: Male

DRUGS (3)
  1. VOLTAREN [Suspect]
     Indication: SPONDYLITIS
     Dosage: 300 MG/DAY
     Route: 048
  2. MINOCIN [Concomitant]
     Route: 048
  3. ENBREL [Suspect]
     Indication: SPONDYLITIS
     Dosage: 50 MG/WEEK
     Route: 058

REACTIONS (7)
  - C-REACTIVE PROTEIN INCREASED [None]
  - INFLAMMATION [None]
  - PYODERMA GANGRENOSUM [None]
  - RASH MACULAR [None]
  - SKIN NODULE [None]
  - SKIN ULCER [None]
  - STAPHYLOCOCCAL SKIN INFECTION [None]
